FAERS Safety Report 8798043 (Version 1)
Quarter: 2012Q4

REPORT INFORMATION
  Report Type: 
  Country: US (occurrence: US)
  Receive Date: 20120920
  Receipt Date: 20120920
  Transmission Date: 20130627
  Serious: Yes (Other)
  Sender: FDA-Public Use
  Company Number: US-ELI_LILLY_AND_COMPANY-US201209002836

PATIENT
  Age: 56 Year
  Sex: Female

DRUGS (4)
  1. CYMBALTA [Suspect]
     Indication: MAJOR DEPRESSION
     Dosage: 1 DF, unknown
  2. CYMBALTA [Suspect]
     Dosage: 60 mg, qd
     Dates: start: 20120712, end: 20120727
  3. CYMBALTA [Suspect]
     Dosage: 30 mg, qd
     Dates: start: 20120727, end: 20120811
  4. CYMBALTA [Suspect]
     Dosage: 30 mg, qod
     Dates: start: 20120811, end: 20120825

REACTIONS (22)
  - Homicidal ideation [Recovered/Resolved]
  - Obesity surgery [Unknown]
  - Drug dose omission [Unknown]
  - Drug withdrawal syndrome [Unknown]
  - Dizziness [Unknown]
  - Anxiety [Unknown]
  - Nausea [Unknown]
  - Memory impairment [Unknown]
  - Restlessness [Unknown]
  - Disturbance in attention [Unknown]
  - Fatigue [Unknown]
  - Hot flush [Unknown]
  - Headache [Unknown]
  - Irritability [Unknown]
  - Insomnia [Unknown]
  - Nervousness [Unknown]
  - Tinnitus [Unknown]
  - Influenza like illness [Unknown]
  - Myalgia [Unknown]
  - Anger [Unknown]
  - Aggression [Unknown]
  - Mood swings [Unknown]
